FAERS Safety Report 7476272-6 (Version None)
Quarter: 2011Q2

REPORT INFORMATION
  Report Type: 
  Country: None (occurrence: None)
  Receive Date: 20110512
  Receipt Date: 20110401
  Transmission Date: 20111010
  Serious: Yes (Other)
  Sender: FDA-Public Use
  Company Number: US-BAYER-201015500NA

PATIENT
  Age: 18 Year
  Sex: Female
  Weight: 74.83 kg

DRUGS (3)
  1. YAZ [Suspect]
     Indication: CONTRACEPTION
     Route: 048
     Dates: start: 20070201, end: 20090701
  2. YAZ [Suspect]
     Indication: GENITAL HAEMORRHAGE
     Dosage: UNK
     Dates: start: 20080201, end: 20090601
  3. ZOLOFT [Concomitant]

REACTIONS (7)
  - CHOLECYSTITIS CHRONIC [None]
  - CHOLELITHIASIS [None]
  - CHOLESTEROSIS [None]
  - GALLBLADDER DISORDER [None]
  - NAUSEA [None]
  - DIARRHOEA [None]
  - ABDOMINAL PAIN UPPER [None]
